FAERS Safety Report 6000759-6 (Version None)
Quarter: 2008Q4

REPORT INFORMATION
  Report Type: 
  Country: None (occurrence: None)
  Receive Date: 20081215
  Receipt Date: 20081204
  Transmission Date: 20090506
  Serious: Yes (Life-Threatening)
  Sender: FDA-Public Use
  Company Number: JP-ASTRAZENECA-2008SE05469

PATIENT
  Age: 24714 Day
  Sex: Female
  Weight: 47 kg

DRUGS (17)
  1. BLOPRESS TABLETS 4 [Suspect]
     Indication: CARDIAC FAILURE
     Route: 048
     Dates: start: 20081113, end: 20081119
  2. LASIX [Concomitant]
     Route: 065
     Dates: start: 20081101, end: 20081119
  3. LASIX [Concomitant]
     Route: 065
  4. HERBESSER R [Concomitant]
     Route: 048
     Dates: start: 20081101, end: 20081119
  5. HERBESSER R [Concomitant]
     Route: 048
  6. RABEPRAZOLE SODIUM [Concomitant]
     Route: 048
     Dates: start: 20081101, end: 20081119
  7. RABEPRAZOLE SODIUM [Concomitant]
     Route: 048
  8. ASPIRIN [Concomitant]
     Route: 048
     Dates: start: 20081101, end: 20081119
  9. ASPIRIN [Concomitant]
     Route: 048
  10. WARFARIN SODIUM [Concomitant]
     Route: 048
     Dates: start: 20081101, end: 20081119
  11. WARFARIN SODIUM [Concomitant]
     Route: 048
  12. FRANDOL TAPE [Concomitant]
     Route: 062
     Dates: start: 20081101, end: 20081119
  13. FRANDOL TAPE [Concomitant]
     Route: 062
  14. ALDACTONE [Concomitant]
     Route: 048
     Dates: start: 20081101, end: 20081119
  15. ALDACTONE [Concomitant]
     Route: 048
  16. MEXITIL [Concomitant]
     Route: 065
     Dates: start: 20081113, end: 20081119
  17. MEXITIL [Concomitant]
     Route: 065

REACTIONS (1)
  - INTERSTITIAL LUNG DISEASE [None]
